FAERS Safety Report 14301659 (Version 1)
Quarter: 2017Q4

REPORT INFORMATION
  Report Type: Report from Study
  Country: US (occurrence: US)
  Receive Date: 20171219
  Receipt Date: 20171219
  Transmission Date: 20180321
  Serious: Yes (Hospitalization, Other)
  Sender: FDA-Public Use
  Company Number: US-PFIZER INC-2017533264

PATIENT
  Age: 53 Year
  Sex: Female

DRUGS (17)
  1. PREDNISONE. [Suspect]
     Active Substance: PREDNISONE
     Dosage: UNK
  2. IRON [Concomitant]
     Active Substance: IRON
     Dosage: UNK
  3. LIPITOR [Concomitant]
     Active Substance: ATORVASTATIN CALCIUM
     Dosage: UNK
  4. AMBRISENTAN [Suspect]
     Active Substance: AMBRISENTAN
     Indication: PULMONARY HYPERTENSION
     Dosage: 10 MG, UNK
     Dates: start: 20120718
  5. PREDNISONE. [Suspect]
     Active Substance: PREDNISONE
     Indication: PLATELET COUNT DECREASED
     Dosage: 40 MG, 1X/DAY
     Dates: start: 20170426
  6. IBUPROFEN. [Concomitant]
     Active Substance: IBUPROFEN
     Dosage: UNK
  7. REVATIO [Suspect]
     Active Substance: SILDENAFIL CITRATE
     Dosage: UNK
  8. COLCRYS [Concomitant]
     Active Substance: COLCHICINE
     Dosage: UNK
  9. ALBUTEROL. [Concomitant]
     Active Substance: ALBUTEROL
     Dosage: UNK
  10. ASPIRIN. [Concomitant]
     Active Substance: ASPIRIN
     Dosage: UNK
  11. ALLOPURINOL. [Concomitant]
     Active Substance: ALLOPURINOL
     Dosage: UNK
  12. SPIRONOLACTONE. [Concomitant]
     Active Substance: SPIRONOLACTONE
     Dosage: UNK
  13. METFORMIN [Concomitant]
     Active Substance: METFORMIN HYDROCHLORIDE
     Dosage: UNK
  14. ADEMPAS [Suspect]
     Active Substance: RIOCIGUAT
     Indication: PULMONARY HYPERTENSION
     Dosage: 2 MG, 3X/DAY (TID)
     Dates: start: 20170426
  15. AMBRISENTAN [Suspect]
     Active Substance: AMBRISENTAN
     Indication: PULMONARY ARTERIAL HYPERTENSION
     Dosage: 10 MG, 1X/DAY [QD]
     Dates: start: 20120717
  16. FUROSEMIDE. [Concomitant]
     Active Substance: FUROSEMIDE
     Dosage: UNK
  17. OXYGEN. [Concomitant]
     Active Substance: OXYGEN
     Dosage: 1.5 L, 1X/DAY [AT NIGHT]

REACTIONS (13)
  - Heart rate irregular [Not Recovered/Not Resolved]
  - Disease progression [Unknown]
  - Epistaxis [Not Recovered/Not Resolved]
  - Panic attack [Unknown]
  - Blood pressure decreased [Not Recovered/Not Resolved]
  - Coronary artery occlusion [Unknown]
  - Platelet count decreased [Recovering/Resolving]
  - Contusion [Not Recovered/Not Resolved]
  - Speech disorder [Unknown]
  - Oedema [Unknown]
  - Alopecia [Not Recovered/Not Resolved]
  - Chest pain [Unknown]
  - Dyspnoea exertional [Not Recovered/Not Resolved]

NARRATIVE: CASE EVENT DATE: 20170701
